FAERS Safety Report 9752137 (Version 1)
Quarter: 2013Q4

REPORT INFORMATION
  Report Type: Spontaneous
  Country: DK (occurrence: None)
  Receive Date: 20131211
  Receipt Date: 20131211
  Transmission Date: 20140711
  Serious: Yes (Hospitalization)
  Sender: FDA-Public Use
  Company Number: FK201305214

PATIENT
  Age: 57 Year
  Sex: Female

DRUGS (2)
  1. CARBOPLATIN [Suspect]
     Indication: UTERINE CANCER
     Dosage: 630 MG, 1 IN 3 WK, INTRAVENOUS
     Route: 042
     Dates: start: 20100503, end: 20100902
  2. TAXOL [Suspect]
     Dosage: 318 MG, 1 IN 3 WK, INTRAVENOUS
     Dates: start: 20100503, end: 20100902

REACTIONS (7)
  - Myoclonus [None]
  - Quality of life decreased [None]
  - Pain [None]
  - Injury [None]
  - Pain in extremity [None]
  - Discomfort [None]
  - Fatigue [None]
